FAERS Safety Report 25240754 (Version 1)
Quarter: 2025Q2

REPORT INFORMATION
  Report Type: Spontaneous
  Country: HR (occurrence: HR)
  Receive Date: 20250425
  Receipt Date: 20250425
  Transmission Date: 20250716
  Serious: Yes (Other)
  Sender: MYLAN
  Company Number: None

PATIENT
  Sex: Female

DRUGS (3)
  1. XANAX [Suspect]
     Active Substance: ALPRAZOLAM
     Indication: Product used for unknown indication
     Dosage: 10 MILLIGRAM, QD (20 TABLETS OF 0.5 MG)
     Dates: start: 20250321, end: 20250321
  2. IBUPROFEN [Suspect]
     Active Substance: IBUPROFEN
     Indication: Product used for unknown indication
     Dosage: 12000 MILLIGRAM, QD (20 TABLETS OF 600 MG)
     Dates: start: 20250321, end: 20250321
  3. OXAZEPAM [Suspect]
     Active Substance: OXAZEPAM
     Indication: Product used for unknown indication
     Dosage: 450 MILLIGRAM, QD (30 TABLETS OF 15 MG)
     Dates: start: 20250321, end: 20250321

REACTIONS (3)
  - Suicide attempt [Unknown]
  - No adverse event [Recovered/Resolved]
  - Intentional overdose [Unknown]

NARRATIVE: CASE EVENT DATE: 20250321
